FAERS Safety Report 6997996-0 (Version None)
Quarter: 2010Q3

REPORT INFORMATION
  Report Type: 
  Country: None (occurrence: None)
  Receive Date: 20100920
  Receipt Date: 20091221
  Transmission Date: 20110219
  Serious: No
  Sender: FDA-Public Use
  Company Number: US-ASTRAZENECA-2006UW07123

PATIENT
  Age: 45 Year
  Sex: Female
  Weight: 76.2 kg

DRUGS (21)
  1. SEROQUEL [Suspect]
     Indication: HALLUCINATION, AUDITORY
     Dosage: 25 MG - 600 MG
     Route: 048
     Dates: start: 20020716
  2. SEROQUEL [Suspect]
     Indication: INSOMNIA
     Dosage: 25 MG - 600 MG
     Route: 048
     Dates: start: 20020716
  3. SEROQUEL [Suspect]
     Dosage: 100 MG - 600 MG
     Route: 048
     Dates: start: 20020801
  4. SEROQUEL [Suspect]
     Dosage: 100 MG - 600 MG
     Route: 048
     Dates: start: 20020801
  5. FLUOXETINE [Concomitant]
     Route: 048
  6. VYTORIN [Concomitant]
     Dosage: 40 MG/10 MG
     Route: 065
  7. HYDROCODONE [Concomitant]
     Route: 048
  8. NAPROXEN [Concomitant]
     Indication: ARTHRITIS
     Dosage: 250 MG- 500 MG
     Route: 048
  9. DIFLUCAN [Concomitant]
     Route: 048
  10. ZITHROMAX [Concomitant]
     Route: 048
  11. VALTREX [Concomitant]
     Route: 048
  12. AMARYL [Concomitant]
     Dosage: 4 MG -25 MG
     Route: 048
  13. NITROFURANTOIN [Concomitant]
     Route: 048
  14. SULFAMETHOXAZOLE AND TRIMETHOPRIM [Concomitant]
     Dosage: 800 MG/ 600MG
     Route: 048
  15. LISINOPRIL [Concomitant]
     Route: 065
  16. RIFAMPIN [Concomitant]
     Route: 048
  17. PROZAC [Concomitant]
     Dosage: 20 MG - 40 MG
     Route: 065
  18. ZOLOFT [Concomitant]
     Route: 065
  19. NEXIUM [Concomitant]
     Route: 065
  20. ACYCLOVIR [Concomitant]
     Route: 048
  21. ACYCLOVIR [Concomitant]
     Route: 048

REACTIONS (12)
  - BLOOD CHOLESTEROL INCREASED [None]
  - CELLULITIS [None]
  - DIABETES MELLITUS [None]
  - EAR DISORDER [None]
  - EAR INFECTION [None]
  - EYE PAIN [None]
  - HYPERLIPIDAEMIA [None]
  - MAJOR DEPRESSION [None]
  - NASOPHARYNGITIS [None]
  - OBESITY [None]
  - OROPHARYNGEAL PAIN [None]
  - VAGINAL INFECTION [None]
